FAERS Safety Report 10169367 (Version 1)
Quarter: 2014Q2

REPORT INFORMATION
  Report Type: Spontaneous
  Country: US (occurrence: US)
  Receive Date: 20140513
  Receipt Date: 20140513
  Transmission Date: 20141212
  Serious: No
  Sender: FDA-Public Use
  Company Number: US-ENDO PHARMACEUTICALS INC.-MONT20140004

PATIENT
  Age: 12 Year
  Sex: Male

DRUGS (2)
  1. MONTELUKAST SODIUM TABLETS 10MG [Suspect]
     Indication: ASTHMA
  2. MONTELUKAST SODIUM TABLETS 10MG [Suspect]
     Indication: HYPERSENSITIVITY

REACTIONS (2)
  - Abdominal discomfort [Unknown]
  - Diarrhoea [Unknown]
